FAERS Safety Report 6397327-3 (Version None)
Quarter: 2009Q4

REPORT INFORMATION
  Report Type: 
  Country: None (occurrence: None)
  Receive Date: 20091012
  Receipt Date: 20091001
  Transmission Date: 20100525
  Serious: Yes (Other)
  Sender: FDA-Public Use
  Company Number: US-SANOFI-SYNTHELABO-A03200904533

PATIENT
  Sex: Female

DRUGS (2)
  1. AMBIEN CR [Suspect]
     Indication: INSOMNIA
     Dosage: TWO TO THREE ZOLPIDEM CR TABLETS EVERY NIGHT
     Route: 048
  2. AMBIEN [Suspect]
     Indication: INSOMNIA
     Route: 048

REACTIONS (3)
  - ABORTION SPONTANEOUS [None]
  - DRUG ABUSE [None]
  - DRUG EXPOSURE DURING PREGNANCY [None]
